FAERS Safety Report 8605658-9 (Version None)
Quarter: 2012Q3

REPORT INFORMATION
  Report Type: 
  Country: None (occurrence: None)
  Receive Date: 20120820
  Receipt Date: 20120809
  Transmission Date: 20120928
  Serious: Yes (Hospitalization, Other)
  Sender: FDA-Public Use
  Company Number: US-ASTRAZENECA-2011SE28663

PATIENT
  Age: 59 Year
  Sex: Male
  Weight: 99.8 kg

DRUGS (22)
  1. CRESTOR [Suspect]
     Route: 048
     Dates: start: 20070101
  2. SEROQUEL [Suspect]
     Route: 048
  3. AMLODIPINE BESYLATE [Concomitant]
  4. SEROQUEL [Suspect]
     Indication: BIPOLAR DISORDER
     Route: 048
     Dates: start: 20090101
  5. SEROQUEL [Suspect]
     Route: 048
  6. SEROQUEL [Suspect]
     Route: 048
  7. SEROQUEL [Suspect]
     Route: 048
     Dates: start: 20090101
  8. SEROQUEL [Suspect]
     Route: 048
  9. WELLBUTRIN [Concomitant]
  10. SEROQUEL [Suspect]
     Route: 048
  11. SEROQUEL [Suspect]
     Route: 048
  12. SEROQUEL [Suspect]
     Route: 048
  13. SEROQUEL [Suspect]
     Route: 048
  14. XANAX [Concomitant]
  15. SEROQUEL [Suspect]
     Indication: DEPRESSION
     Route: 048
     Dates: start: 20090101
  16. SEROQUEL [Suspect]
     Indication: MAJOR DEPRESSION
     Route: 048
     Dates: start: 20090101
  17. SEROQUEL [Suspect]
     Route: 048
  18. SEROQUEL [Suspect]
     Route: 048
  19. SEROQUEL [Suspect]
     Route: 048
  20. SEROQUEL [Suspect]
     Route: 048
  21. TRILIPIX [Concomitant]
     Dosage: 135 MG TWO PILLS A DAY UP TO FOUR PILLS A DAY
  22. LOSARTAN POTASSIUM AND HYDROCHLOROTHIAZIDE [Concomitant]
     Indication: BLOOD PRESSURE
     Dosage: 100/25 MG UNKNOWN

REACTIONS (12)
  - INSOMNIA [None]
  - INTENTIONAL DRUG MISUSE [None]
  - SPINAL FRACTURE [None]
  - APPENDICITIS PERFORATED [None]
  - INTERVERTEBRAL DISC PROTRUSION [None]
  - FEELING ABNORMAL [None]
  - BONE DISORDER [None]
  - DRUG WITHDRAWAL SYNDROME [None]
  - DRUG DOSE OMISSION [None]
  - CLOSTRIDIAL INFECTION [None]
  - BALANCE DISORDER [None]
  - INTERVERTEBRAL DISC DEGENERATION [None]
